FAERS Safety Report 7608415-5 (Version None)
Quarter: 2011Q3

REPORT INFORMATION
  Report Type: 
  Country: None (occurrence: None)
  Receive Date: 20110713
  Receipt Date: 20110713
  Transmission Date: 20111222
  Serious: Yes (Death)
  Sender: FDA-Public Use
  Company Number: None

PATIENT
  Age: 51 Year
  Sex: Male
  Weight: 49.4421 kg

DRUGS (4)
  1. VORINOSTAT / MERCK [Suspect]
     Indication: METASTASES TO CENTRAL NERVOUS SYSTEM
     Dosage: 400 MG/ QD M-F, PO
     Route: 048
     Dates: start: 20110616, end: 20110627
  2. SENNOSIDE-DOCUSATE [Concomitant]
  3. ALPROZAM [Concomitant]
  4. HYDROCODONE BITARTRATE AND ACETAMINOPHEN [Concomitant]

REACTIONS (1)
  - DEATH [None]
